FAERS Safety Report 4668455-5 (Version None)
Quarter: 2005Q2

REPORT INFORMATION
  Report Type: 
  Country: None (occurrence: None)
  Receive Date: 20050523
  Receipt Date: 20040625
  Transmission Date: 20051028
  Serious: No
  Sender: FDA-Public Use
  Company Number: US-BRISTOL-MYERS SQUIBB COMPANY-12627006

PATIENT

DRUGS (1)
  1. VEETIDS [Suspect]
     Route: 050

REACTIONS (1)
  - DIARRHOEA [None]
